FAERS Safety Report 18925188 (Version 1)
Quarter: 2021Q1

REPORT INFORMATION
  Report Type: Spontaneous
  Country: IT (occurrence: IT)
  Receive Date: 20210223
  Receipt Date: 20210223
  Transmission Date: 20210420
  Serious: Yes (Death, Other)
  Sender: FDA-Public Use
  Company Number: IT-AMGEN-ITASP2021028177

PATIENT

DRUGS (4)
  1. PREDNISOLONE. [Concomitant]
     Active Substance: PREDNISOLONE
     Dosage: UNK (FOR 5 DAYS)
  2. ANTILYMPHOCYTE GLOBULIN [Concomitant]
     Active Substance: THYMOCYTE IMMUNE GLOBULIN NOS
     Dosage: UNK
  3. CICLOSPORIN [Concomitant]
     Active Substance: CYCLOSPORINE
     Dosage: 5 MILLIGRAM/KILOGRAM, QD (FOR AT LEAST 180 DAYS)
     Route: 048
  4. FILGRASTIM [Suspect]
     Active Substance: FILGRASTIM
     Indication: APLASTIC ANAEMIA
     Dosage: 5 MICROGRAM/KILOGRAM, QD (FROM DAY +1 AND CONTINUED AT LEAST UP TO DAY +90)
     Route: 058

REACTIONS (11)
  - Off label use [Unknown]
  - Infection [Fatal]
  - Treatment failure [Unknown]
  - Metastasis [Fatal]
  - Cytogenetic analysis abnormal [Unknown]
  - Myelodysplastic syndrome [Unknown]
  - Therapy partial responder [Unknown]
  - Paroxysmal nocturnal haemoglobinuria [Unknown]
  - Neutrophil count decreased [Unknown]
  - Haemorrhage [Fatal]
  - Acute leukaemia [Unknown]
